FAERS Safety Report 11008117 (Version 4)
Quarter: 2015Q2

REPORT INFORMATION
  Report Type: Spontaneous
  Country: JP (occurrence: JP)
  Receive Date: 20150410
  Receipt Date: 20150422
  Transmission Date: 20150821
  Serious: Yes (Hospitalization)
  Sender: FDA-Public Use
  Company Number: JP-MERCK-1504JPN002267

PATIENT
  Age: 3 Year
  Sex: Female

DRUGS (2)
  1. JANUVIA [Suspect]
     Active Substance: SITAGLIPTIN PHOSPHATE
     Dosage: 1 DF, QD
     Route: 048
  2. AMLODIPINE BESYLATE (+) CANDESARTAN CILEXETIL [Suspect]
     Active Substance: AMLODIPINE BESYLATE\CANDESARTAN CILEXETIL
     Dosage: 1 DF, QD
     Route: 048

REACTIONS (4)
  - Vomiting [Recovering/Resolving]
  - Accidental exposure to product by child [Unknown]
  - Somnolence [Recovering/Resolving]
  - Overdose [Unknown]
